FAERS Safety Report 22216827 (Version 1)
Quarter: 2023Q2

REPORT INFORMATION
  Report Type: Other
  Country: FR (occurrence: FR)
  Receive Date: 20230417
  Receipt Date: 20230417
  Transmission Date: 20230721
  Serious: Yes (Hospitalization, Other)
  Sender: FDA-Public Use
  Company Number: None

PATIENT

DRUGS (6)
  1. ATORVASTATIN [Suspect]
     Active Substance: ATORVASTATIN
     Indication: Dyslipidaemia
     Dosage: 40 MILLIGRAM, QD
     Route: 048
     Dates: end: 20230319
  2. BISOPROLOL [Suspect]
     Active Substance: BISOPROLOL
     Indication: Myocardial ischaemia
     Dosage: 2.5 MILLIGRAM, QD
     Route: 048
     Dates: end: 20230319
  3. METFORMIN [Suspect]
     Active Substance: METFORMIN HYDROCHLORIDE
     Indication: Diabetes mellitus
     Dosage: 850 MILLIGRAM, BID
     Route: 048
     Dates: end: 20230319
  4. OPDIVO [Suspect]
     Active Substance: NIVOLUMAB
     Indication: Epithelioid mesothelioma
     Dosage: 360 MILLIGRAM, 1 CYCLICAL
     Route: 042
     Dates: start: 20230117, end: 20230228
  5. YERVOY [Suspect]
     Active Substance: IPILIMUMAB
     Indication: Epithelioid mesothelioma
     Dosage: 75 MILLIGRAM, 1 CYCLICAL
     Route: 042
     Dates: start: 20230117, end: 20230227
  6. HYDROCHLOROTHIAZIDE [Suspect]
     Active Substance: HYDROCHLOROTHIAZIDE
     Indication: Myocardial ischaemia
     Dosage: 25 MILLIGRAM, QD
     Route: 048
     Dates: start: 202303, end: 20230319

REACTIONS (5)
  - Hypokalaemia [Recovering/Resolving]
  - Hypercalcaemia [Recovering/Resolving]
  - Encephalitis [Recovering/Resolving]
  - Hypophosphataemia [Recovering/Resolving]
  - Hypernatraemia [Recovered/Resolved]

NARRATIVE: CASE EVENT DATE: 20230301
